FAERS Safety Report 8231944-0 (Version None)
Quarter: 2012Q1

REPORT INFORMATION
  Report Type: 
  Country: None (occurrence: None)
  Receive Date: 20120323
  Receipt Date: 20120229
  Transmission Date: 20120608
  Serious: Yes (Other)
  Sender: FDA-Public Use
  Company Number: DE-ROCHE-1051444

PATIENT
  Sex: Female

DRUGS (2)
  1. BISPHOSPHONATE (UNK INGREDIENTS) [Concomitant]
     Indication: METASTASES TO BONE
     Dates: start: 20060401
  2. TRASTUZUMAB [Suspect]
     Indication: BREAST CANCER METASTATIC
     Dates: start: 20060401

REACTIONS (2)
  - NEUROPATHY PERIPHERAL [None]
  - AORTIC VALVE INCOMPETENCE [None]
